FAERS Safety Report 25970659 (Version 1)
Quarter: 2025Q4

REPORT INFORMATION
  Report Type: Spontaneous
  Country: CN (occurrence: CN)
  Receive Date: 20251028
  Receipt Date: 20251028
  Transmission Date: 20260117
  Serious: Yes (Other)
  Sender: PFIZER
  Company Number: CN-PFIZER INC-PV202500125367

PATIENT
  Age: 40 Year
  Sex: Male
  Weight: 50 kg

DRUGS (2)
  1. VORICONAZOLE [Suspect]
     Active Substance: VORICONAZOLE
     Indication: Fungal infection
     Dosage: 0.3 G, 2X/DAY
     Route: 041
     Dates: start: 20250830, end: 20250830
  2. VORICONAZOLE [Suspect]
     Active Substance: VORICONAZOLE
     Dosage: 0.2 G, 2X/DAY
     Route: 041
     Dates: start: 20250831, end: 20250902

REACTIONS (4)
  - Delirium [Recovering/Resolving]
  - Disorganised speech [Recovering/Resolving]
  - Poor quality sleep [Recovering/Resolving]
  - Mental disorder [Recovering/Resolving]

NARRATIVE: CASE EVENT DATE: 20250830
